FAERS Safety Report 5194312-4 (Version None)
Quarter: 2006Q4

REPORT INFORMATION
  Report Type: 
  Country: None (occurrence: None)
  Receive Date: 20061228
  Receipt Date: 20061101
  Transmission Date: 20070319
  Serious: Yes (Death, Other)
  Sender: FDA-Public Use
  Company Number: JP-PFIZER INC-2006133732

PATIENT
  Age: 24 Month
  Sex: Female
  Weight: 12 kg

DRUGS (5)
  1. ZYVOX [Suspect]
     Indication: SEPSIS
     Route: 042
  2. MINOCYCLINE HCL [Concomitant]
     Route: 042
  3. CIPROFLOXACIN [Concomitant]
     Route: 042
  4. VFEND [Concomitant]
  5. MODACIN [Concomitant]
     Route: 042

REACTIONS (7)
  - CONDITION AGGRAVATED [None]
  - DIARRHOEA [None]
  - HAEMOGLOBIN DECREASED [None]
  - HEPATIC ENZYME INCREASED [None]
  - LIVER FUNCTION TEST ABNORMAL [None]
  - MELAENA [None]
  - PLATELET COUNT DECREASED [None]
